FAERS Safety Report 22137098 (Version 1)
Quarter: 2023Q1

REPORT INFORMATION
  Report Type: Report from Study
  Country: CO (occurrence: CO)
  Receive Date: 20230324
  Receipt Date: 20230324
  Transmission Date: 20230417
  Serious: Yes (Death)
  Sender: FDA-Public Use
  Company Number: CO-002147023-NVSC2023CO038934

PATIENT

DRUGS (1)
  1. RUXOLITINIB [Suspect]
     Active Substance: RUXOLITINIB
     Indication: Myelofibrosis
     Dosage: 20 MG, Q12H (EVERY 12 HOURS)
     Route: 048

REACTIONS (3)
  - Death [Fatal]
  - Gait inability [Unknown]
  - Illness [Unknown]

NARRATIVE: CASE EVENT DATE: 20230308
